FAERS Safety Report 12141268 (Version 3)
Quarter: 2019Q2

REPORT INFORMATION
  Report Type: Spontaneous
  Country: CA (occurrence: CA)
  Receive Date: 20160303
  Receipt Date: 20190524
  Transmission Date: 20190711
  Serious: Yes (Hospitalization)
  Sender: FDA-Public Use
  Company Number: CA-PFIZER INC-2016131051

PATIENT
  Age: 28 Year
  Sex: Female
  Weight: 64 kg

DRUGS (3)
  1. CENTRUM MATERNA [Concomitant]
     Active Substance: MINERALS\VITAMINS
     Dosage: UNK, QD
     Route: 048
  2. PREGVIT [Concomitant]
     Dosage: UNK, QD
     Route: 048
  3. PANTOPRAZOLE [Suspect]
     Active Substance: PANTOPRAZOLE
     Indication: GASTROOESOPHAGEAL REFLUX DISEASE
     Dosage: 40 MG, UNK
     Route: 048
     Dates: start: 20150718

REACTIONS (7)
  - Expired product administered [Unknown]
  - Asthenia [Unknown]
  - Pruritus [Unknown]
  - Swollen tongue [Unknown]
  - Hypotension [Unknown]
  - Abdominal pain [Unknown]
  - Lip swelling [Unknown]

NARRATIVE: CASE EVENT DATE: 20150718
